FAERS Safety Report 10349838 (Version 4)
Quarter: 2015Q3

REPORT INFORMATION
  Report Type: Spontaneous
  Country: FR (occurrence: FR)
  Receive Date: 20140730
  Receipt Date: 20150820
  Transmission Date: 20151125
  Serious: Yes (Death, Life-Threatening, Other)
  Sender: FDA-Public Use
  Company Number: PHHY2014FR087353

PATIENT
  Age: 63 Year
  Sex: Male

DRUGS (9)
  1. ZALDIAR [Suspect]
     Active Substance: ACETAMINOPHEN\TRAMADOL HYDROCHLORIDE
     Indication: MUSCULOSKELETAL PAIN
     Dosage: 1 DF, UNK
     Route: 048
     Dates: start: 20140711, end: 20140713
  2. TRAMADOL. [Concomitant]
     Active Substance: TRAMADOL
     Indication: MUSCULOSKELETAL PAIN
     Dosage: UNK
     Route: 065
     Dates: start: 20140711, end: 20140712
  3. HYDROXYZINE HYDROCHLORIDE. [Suspect]
     Active Substance: HYDROXYZINE HYDROCHLORIDE
     Indication: PRODUCT USED FOR UNKNOWN INDICATION
     Dosage: UNK
     Route: 065
  4. SIRDALUD [Suspect]
     Active Substance: TIZANIDINE
     Dosage: 3 DF, DURING WEEKEND
     Route: 065
     Dates: end: 20140714
  5. OMEPRAZOL//OMEPRAZOLE [Concomitant]
     Indication: MUSCULOSKELETAL PAIN
     Dosage: UNK
     Route: 065
     Dates: start: 20140711, end: 20140712
  6. SIRDALUD [Suspect]
     Active Substance: TIZANIDINE
     Indication: MUSCULOSKELETAL PAIN
     Dosage: 2 MG, QD
     Route: 065
     Dates: start: 20140711
  7. DICLOFENAC [Suspect]
     Active Substance: DICLOFENAC
     Indication: MUSCULOSKELETAL PAIN
     Dosage: UNK UKN, UNK
     Route: 030
     Dates: start: 20140711
  8. VOLTAREN [Suspect]
     Active Substance: DICLOFENAC SODIUM
     Indication: MUSCULOSKELETAL PAIN
     Route: 048
     Dates: start: 20140711, end: 20140714
  9. PARACETAMOL [Concomitant]
     Active Substance: ACETAMINOPHEN
     Indication: MUSCULOSKELETAL PAIN
     Dosage: UNK UKN, UNK
     Route: 065
     Dates: start: 20140711, end: 20140712

REACTIONS (39)
  - Toxicity to various agents [Unknown]
  - Mitral valve incompetence [Fatal]
  - Bilirubin conjugated increased [Fatal]
  - Dehydration [Unknown]
  - Musculoskeletal pain [Unknown]
  - Pain in extremity [Unknown]
  - Pneumococcal infection [Unknown]
  - Blood creatine phosphokinase increased [Fatal]
  - Dyspnoea [Fatal]
  - C-reactive protein increased [Fatal]
  - Haemoglobin decreased [Unknown]
  - Lactic acidosis [Fatal]
  - Leukopenia [Unknown]
  - Pulmonary hypertension [Unknown]
  - Thrombocytopenia [Unknown]
  - Hepatic failure [Fatal]
  - Renal failure [Fatal]
  - Nausea [Fatal]
  - Blood lactic acid increased [Fatal]
  - Paraesthesia [Unknown]
  - Cell death [Unknown]
  - Vomiting [Fatal]
  - Septic shock [Fatal]
  - Blood creatinine increased [Fatal]
  - Decreased appetite [Fatal]
  - Multi-organ failure [Unknown]
  - Blood lactate dehydrogenase increased [Fatal]
  - Oedema peripheral [Unknown]
  - Ventricular hypokinesia [Fatal]
  - Acidosis [Unknown]
  - Aspartate aminotransferase increased [Fatal]
  - Alanine aminotransferase increased [Fatal]
  - Constipation [Unknown]
  - Altered state of consciousness [Unknown]
  - Cardiac arrest [Fatal]
  - Bradycardia [Fatal]
  - Hyponatraemia [Fatal]
  - Hyperkalaemia [Fatal]
  - Blood urea increased [Fatal]

NARRATIVE: CASE EVENT DATE: 201407
